FAERS Safety Report 8564564-9 (Version None)
Quarter: 2012Q3

REPORT INFORMATION
  Report Type: 
  Country: None (occurrence: None)
  Receive Date: 20120803
  Receipt Date: 20120724
  Transmission Date: 20120928
  Serious: Yes (Other)
  Sender: FDA-Public Use
  Company Number: BR-PFIZER INC-2012186924

PATIENT
  Age: 68 Year
  Sex: Female
  Weight: 94 kg

DRUGS (4)
  1. PANTOPRAZOLE [Suspect]
     Dosage: 40 MG, 1X/DAY
     Route: 048
     Dates: start: 20120501
  2. FLUOXETINE [Concomitant]
     Indication: DEPRESSION
     Dosage: 1 DF, UNK
     Route: 048
     Dates: start: 20020101
  3. ATACAND HCT [Concomitant]
     Indication: HYPERTENSION
     Dosage: 1 DF, UNK
     Route: 048
     Dates: start: 20070101
  4. LEVOTHYROXINE SODIUM [Concomitant]
     Indication: HYPOTHYROIDISM
     Dosage: 1 DF, UNK
     Route: 048
     Dates: start: 20050101

REACTIONS (5)
  - THROMBOCYTOPENIA [None]
  - ANAEMIA [None]
  - SWELLING [None]
  - ARTHRALGIA [None]
  - MYALGIA [None]
